FAERS Safety Report 6899593-4 (Version None)
Quarter: 2010Q3

REPORT INFORMATION
  Report Type: 
  Country: None (occurrence: None)
  Receive Date: 20100729
  Receipt Date: 20090504
  Transmission Date: 20110219
  Serious: Yes (Other)
  Sender: FDA-Public Use
  Company Number: 2009-US-0022

PATIENT
  Age: 37 Year
  Sex: Male

DRUGS (6)
  1. SANCUSO [Suspect]
     Indication: CHEMOTHERAPY
     Dosage: TRANSDERMAL
     Route: 062
     Dates: start: 20090427, end: 20090430
  2. SANCUSO [Suspect]
     Indication: NAUSEA
     Dosage: TRANSDERMAL
     Route: 062
     Dates: start: 20090427, end: 20090430
  3. SANCUSO [Suspect]
     Indication: VOMITING
     Dosage: TRANSDERMAL
     Route: 062
     Dates: start: 20090427, end: 20090430
  4. INTRON A [Suspect]
     Dosage: 37 MIU
  5. NEXIUM [Concomitant]
  6. ACETAMINOPHEN [Concomitant]

REACTIONS (3)
  - CHEST DISCOMFORT [None]
  - CHEST PAIN [None]
  - NASAL CONGESTION [None]
